FAERS Safety Report 16087241 (Version 1)
Quarter: 2019Q1

REPORT INFORMATION
  Report Type: Spontaneous
  Country: BR (occurrence: BR)
  Receive Date: 20190319
  Receipt Date: 20190319
  Transmission Date: 20190418
  Serious: Yes (Other)
  Sender: FDA-Public Use
  Company Number: BR-BRISTOL-MYERS SQUIBB COMPANY-BMS-2019-016283

PATIENT
  Sex: Male

DRUGS (2)
  1. HYDREA [Suspect]
     Active Substance: HYDROXYUREA
     Indication: POLYCYTHAEMIA VERA
     Route: 065
  2. HYDREA [Suspect]
     Active Substance: HYDROXYUREA
     Indication: HAEMATOCRIT INCREASED
     Dosage: 2000 MG,(4 CAPSULES)
     Route: 048
     Dates: start: 201808

REACTIONS (5)
  - Suspected counterfeit product [Unknown]
  - Haemorrhage [Unknown]
  - Drug ineffective [Unknown]
  - Diarrhoea [Unknown]
  - Prostatic disorder [Unknown]

NARRATIVE: CASE EVENT DATE: 201901
